FAERS Safety Report 23520955 (Version 1)
Quarter: 2024Q1

REPORT INFORMATION
  Report Type: 
  Country: None (occurrence: None)
  Receive Date: 20240214
  Receipt Date: 20240214
  Transmission Date: 20240410
  Serious: No
  Sender: FDA-Public Use
  Company Number: CA-ROCHE-1628295

PATIENT
  Weight: 76.5 kg

DRUGS (19)
  1. XOLAIR [Suspect]
     Active Substance: OMALIZUMAB
     Dosage: 300 MG, EVERY 4 WEEKS
     Dates: start: 20141001
  2. XOLAIR [Suspect]
     Active Substance: OMALIZUMAB
     Dates: start: 20160420
  3. XOLAIR [Suspect]
     Active Substance: OMALIZUMAB
     Dates: start: 20160518
  4. XOLAIR [Suspect]
     Active Substance: OMALIZUMAB
     Dates: start: 20161102
  5. XOLAIR [Suspect]
     Active Substance: OMALIZUMAB
     Dates: start: 20161201
  6. XOLAIR [Suspect]
     Active Substance: OMALIZUMAB
     Dates: start: 20171129
  7. XOLAIR [Suspect]
     Active Substance: OMALIZUMAB
     Dates: start: 20180907
  8. XOLAIR [Suspect]
     Active Substance: OMALIZUMAB
     Dates: start: 20170614
  9. XOLAIR [Suspect]
     Active Substance: OMALIZUMAB
     Dates: start: 20181228
  10. XOLAIR [Suspect]
     Active Substance: OMALIZUMAB
     Dates: start: 20190418
  11. XOLAIR [Suspect]
     Active Substance: OMALIZUMAB
     Dosage: 300 MG, EVERY 4 WEEKS
     Dates: start: 20190515
  12. XOLAIR [Suspect]
     Active Substance: OMALIZUMAB
     Dosage: 300 MG, EVERY 4 WEEKS
     Dates: start: 20190612
  13. XOLAIR [Suspect]
     Active Substance: OMALIZUMAB
     Dosage: 300 MG, EVERY 4 WEEKS
     Dates: start: 20191128
  14. XOLAIR [Suspect]
     Active Substance: OMALIZUMAB
     Dosage: 300 MG, EVERY 4 WEEKS
     Dates: start: 20150130
  15. XOLAIR [Suspect]
     Active Substance: OMALIZUMAB
     Dosage: 300 MG, EVERY 4 WEEKS
  16. MORPHINE [Suspect]
     Active Substance: MORPHINE
     Dosage: UNK
  17. ALVESCO [Concomitant]
     Active Substance: CICLESONIDE
     Dosage: UNK
  18. ALBUTEROL SULFATE [Concomitant]
     Active Substance: ALBUTEROL SULFATE
     Dosage: UNK
  19. SYMBICORT [Concomitant]
     Active Substance: BUDESONIDE\FORMOTEROL FUMARATE DIHYDRATE
     Dosage: UNK

REACTIONS (42)
  - Product dose omission issue [None]
  - Hypersensitivity [None]
  - Carpal tunnel syndrome [None]
  - Pneumonia [None]
  - Dyspnoea [None]
  - Road traffic accident [None]
  - Musculoskeletal stiffness [None]
  - Conjunctivitis viral [None]
  - Rib fracture [None]
  - Eye discharge [None]
  - Swelling of eyelid [None]
  - Ocular hyperaemia [None]
  - Hand fracture [None]
  - Lower respiratory tract congestion [None]
  - Drug ineffective [None]
  - Pain [None]
  - Viral infection [None]
  - Weight decreased [None]
  - Amnesia [None]
  - Influenza [None]
  - Accident [None]
  - Fracture [None]
  - Gait inability [None]
  - COVID-19 [None]
  - Cough [None]
  - Dry eye [None]
  - Post procedural swelling [None]
  - Pain in extremity [None]
  - Pulmonary calcification [None]
  - Rhinorrhoea [None]
  - Headache [None]
  - Nasopharyngitis [None]
  - Insomnia [None]
  - Nausea [None]
  - Dizziness [None]
  - Dark circles under eyes [None]
  - Joint swelling [None]
  - Drug hypersensitivity [None]
  - Weight increased [None]
  - Wrong technique in product usage process [None]
  - Malaise [None]
  - Paraesthesia [None]

NARRATIVE: CASE EVENT DATE: 20141001
